FAERS Safety Report 7107003-7 (Version None)
Quarter: 2010Q4

REPORT INFORMATION
  Report Type: 
  Country: None (occurrence: None)
  Receive Date: 20101116
  Receipt Date: 20100903
  Transmission Date: 20110411
  Serious: No
  Sender: FDA-Public Use
  Company Number: US-ABBOTT-10P-163-0669267-00

PATIENT
  Sex: Female
  Weight: 89.438 kg

DRUGS (4)
  1. SIMCOR [Suspect]
     Indication: BLOOD CHOLESTEROL INCREASED
     Dosage: 1000/40MG AT BEDTIME
     Dates: start: 20100829
  2. SIMCOR [Suspect]
     Indication: LOW DENSITY LIPOPROTEIN
  3. ALLEGRA [Concomitant]
     Indication: PRODUCT USED FOR UNKNOWN INDICATION
     Dosage: AT BEDTIME
  4. AFFINITOR [Concomitant]
     Indication: NEOPLASM MALIGNANT

REACTIONS (12)
  - FLUSHING [None]
  - GAIT DISTURBANCE [None]
  - HEADACHE [None]
  - MALAISE [None]
  - MUSCULAR WEAKNESS [None]
  - OEDEMA PERIPHERAL [None]
  - PAIN IN EXTREMITY [None]
  - PALPITATIONS [None]
  - PRURITUS [None]
  - SKIN BURNING SENSATION [None]
  - SLEEP DISORDER [None]
  - UNEVALUABLE EVENT [None]
